FAERS Safety Report 4644639-7 (Version None)
Quarter: 2005Q2

REPORT INFORMATION
  Report Type: 
  Country: None (occurrence: None)
  Receive Date: 20050425
  Receipt Date: 20050425
  Transmission Date: 20051028
  Serious: Yes (Other)
  Sender: FDA-Public Use
  Company Number: None

PATIENT
  Age: 33 Year
  Sex: Female
  Weight: 79.3795 kg

DRUGS (1)
  1. SEASONALE [Suspect]
     Indication: CONTRACEPTION
     Dosage: ONE PILL     PER DAY    ORAL
     Route: 048
     Dates: start: 20040301, end: 20040915

REACTIONS (5)
  - HEADACHE [None]
  - HYPERACUSIS [None]
  - MIGRAINE [None]
  - PHOTOSENSITIVITY REACTION [None]
  - VOMITING [None]
